FAERS Safety Report 10613251 (Version 2)
Quarter: 2014Q4

REPORT INFORMATION
  Report Type: Report from Study
  Country: DE (occurrence: DE)
  Receive Date: 20141128
  Receipt Date: 20141128
  Transmission Date: 20150529
  Serious: Yes (Hospitalization)
  Sender: FDA-Public Use
  Company Number: DE-ROCHE-1487514

PATIENT
  Age: 78 Year
  Sex: Male

DRUGS (18)
  1. ZYPREXA [Concomitant]
     Active Substance: OLANZAPINE
  2. PANTOZOL [Concomitant]
     Active Substance: PANTOPRAZOLE SODIUM
  3. LACTULOSE. [Concomitant]
     Active Substance: LACTULOSE
     Dosage: 1/DAY
     Route: 065
  4. PREDNISONE. [Suspect]
     Active Substance: PREDNISONE
     Indication: MANTLE CELL LYMPHOMA STAGE II
     Route: 065
  5. BENDAMUSTINE [Suspect]
     Active Substance: BENDAMUSTINE
     Indication: MANTLE CELL LYMPHOMA STAGE II
     Dosage: DATE OF LAST DOSE PRIOR TO SAE ONSET: 03/JUN/2012
     Route: 042
     Dates: start: 20120404
  6. MYOCET [Suspect]
     Active Substance: DOXORUBICIN
     Indication: MANTLE CELL LYMPHOMA STAGE II
     Route: 065
  7. VENLAFAXINE [Concomitant]
     Active Substance: VENLAFAXINE HYDROCHLORIDE
  8. RITUXIMAB [Suspect]
     Active Substance: RITUXIMAB
     Indication: MANTLE CELL LYMPHOMA STAGE II
     Dosage: DATE OF LAST DOSE PRIOR TO SAE ONSET:31/MAY/2012
     Route: 042
     Dates: start: 20120403
  9. XIMOVAN [Concomitant]
  10. BISOPROLOL [Concomitant]
     Active Substance: BISOPROLOL
  11. REMERGIL [Concomitant]
     Active Substance: MIRTAZAPINE
  12. RITUXIMAB [Suspect]
     Active Substance: RITUXIMAB
     Route: 042
  13. VINCRISTIN [Suspect]
     Active Substance: VINCRISTINE
     Indication: MANTLE CELL LYMPHOMA STAGE II
     Route: 065
  14. CYCLOPHOSPHAMID [Suspect]
     Active Substance: CYCLOPHOSPHAMIDE
     Indication: MANTLE CELL LYMPHOMA STAGE II
     Route: 065
  15. RAMIPRIL. [Concomitant]
     Active Substance: RAMIPRIL
  16. ALLOPURINOL. [Concomitant]
     Active Substance: ALLOPURINOL
  17. NORTRILEN [Concomitant]
     Active Substance: NORTRIPTYLINE
     Route: 065
  18. TAMSULOSIN [Concomitant]
     Active Substance: TAMSULOSIN

REACTIONS (1)
  - Constipation [Recovered/Resolved]

NARRATIVE: CASE EVENT DATE: 20121202
